FAERS Safety Report 15858811 (Version 3)
Quarter: 2019Q4

REPORT INFORMATION
  Report Type: Report from Study
  Country: US (occurrence: US)
  Receive Date: 20190123
  Receipt Date: 20191129
  Transmission Date: 20200122
  Serious: Yes (Other)
  Sender: FDA-Public Use
  Company Number: US-ALEXION PHARMACEUTICALS INC.-A201900934

PATIENT
  Sex: Female

DRUGS (1)
  1. STRENSIQ [Suspect]
     Active Substance: ASFOTASE ALFA
     Indication: HYPOPHOSPHATASIA
     Route: 065

REACTIONS (6)
  - Swelling face [Unknown]
  - Speech disorder developmental [Unknown]
  - Coeliac disease [Unknown]
  - Pain in extremity [Unknown]
  - Bowel movement irregularity [Unknown]
  - Developmental delay [Unknown]
